FAERS Safety Report 7936130-7 (Version None)
Quarter: 2011Q4

REPORT INFORMATION
  Report Type: 
  Country: None (occurrence: None)
  Receive Date: 20111123
  Receipt Date: 20111118
  Transmission Date: 20120403
  Serious: Yes (Hospitalization)
  Sender: FDA-Public Use
  Company Number: US-B.I. PHARMACEUTICALS,INC./RIDGEFIELD-2011-BP-26538BP

PATIENT
  Sex: Male

DRUGS (15)
  1. APIDRA [Suspect]
     Indication: TYPE 2 DIABETES MELLITUS
     Dosage: 45 U
     Dates: start: 20110413
  2. CLONIDINE HCL [Suspect]
     Dates: start: 20110809, end: 20111105
  3. ADP ANTAGONIST [Concomitant]
  4. ALDOSTERONE INHIBITOR [Concomitant]
  5. CALCIUM ANTAGONIST [Concomitant]
  6. STATIN [Concomitant]
  7. DIURETICS [Concomitant]
  8. NITRATES [Concomitant]
  9. ANGIOTENSION CONVERTING ENZYME INHIBITOR [Concomitant]
  10. SAXAGLIPTIN [Suspect]
     Indication: TYPE 2 DIABETES MELLITUS
     Dates: start: 20110222, end: 20110921
  11. PLACEBO [Suspect]
     Indication: TYPE 2 DIABETES MELLITUS
  12. BETA BLOCKER [Concomitant]
  13. OTHER HYPERTENSION AGENT [Concomitant]
  14. CATAPRES-TTS-1 [Suspect]
     Dates: start: 20110809, end: 20111105
  15. LANTUS [Suspect]
     Indication: TYPE 2 DIABETES MELLITUS

REACTIONS (1)
  - SYNCOPE [None]
